FAERS Safety Report 8427308-7 (Version None)
Quarter: 2012Q2

REPORT INFORMATION
  Report Type: 
  Country: None (occurrence: None)
  Receive Date: 20120601
  Receipt Date: 20120524
  Transmission Date: 20120825
  Serious: Yes (Hospitalization, Disabling)
  Sender: FDA-Public Use
  Company Number: 2010SP058340

PATIENT
  Age: 28 Year
  Sex: Female
  Weight: 58.0604 kg

DRUGS (1)
  1. NUVARING [Suspect]
     Indication: MENSTRUAL CYCLE MANAGEMENT
     Dates: start: 20090601, end: 20100321

REACTIONS (15)
  - ADNEXA UTERI CYST [None]
  - ANXIETY [None]
  - MENORRHAGIA [None]
  - PULMONARY EMBOLISM [None]
  - PLEURITIC PAIN [None]
  - TACHYCARDIA [None]
  - PULMONARY INFARCTION [None]
  - NAUSEA [None]
  - DEVICE DISLOCATION [None]
  - EXERCISE TOLERANCE DECREASED [None]
  - LOCALISED INTRAABDOMINAL FLUID COLLECTION [None]
  - VENOUS STENOSIS [None]
  - DEEP VEIN THROMBOSIS [None]
  - MUSCLE SPASMS [None]
  - BRADYCARDIA [None]
